FAERS Safety Report 9769196 (Version 1)
Quarter: 2013Q4

REPORT INFORMATION
  Report Type: Spontaneous
  Country: US (occurrence: None)
  Receive Date: 20131217
  Receipt Date: 20131217
  Transmission Date: 20140711
  Serious: Yes (Death)
  Sender: FDA-Public Use
  Company Number: None

PATIENT
  Sex: Male

DRUGS (1)
  1. REVLIMID 10MG CELGENE [Suspect]
     Dosage: 2 CAPS DAILY ORAL
     Dates: start: 20130118

REACTIONS (2)
  - Disease progression [None]
  - Unevaluable event [None]
